FAERS Safety Report 5422435-0 (Version None)
Quarter: 2007Q3

REPORT INFORMATION
  Report Type: 
  Country: None (occurrence: None)
  Receive Date: 20070822
  Receipt Date: 20070817
  Transmission Date: 20080115
  Serious: Yes (Other)
  Sender: FDA-Public Use
  Company Number: B0484012A

PATIENT
  Age: 80 Year
  Sex: Male

DRUGS (4)
  1. AVODART [Suspect]
     Dosage: .5MG PER DAY
     Route: 048
     Dates: start: 20070701, end: 20070801
  2. PREVISCAN [Concomitant]
     Route: 065
  3. UNSPECIFIED TREATMENT [Concomitant]
     Route: 065
  4. UNSPECIFIED TREATMENT [Concomitant]
     Route: 065

REACTIONS (1)
  - VASCULITIS [None]
